FAERS Safety Report 8428824 (Version 3)
Quarter: 2016Q4

REPORT INFORMATION
  Report Type: Spontaneous
  Country: US (occurrence: US)
  Receive Date: 20120227
  Receipt Date: 20161220
  Transmission Date: 20170207
  Serious: Yes (Other)
  Sender: FDA-Public Use
  Company Number: US-ROCHE-1029087

PATIENT
  Sex: Male

DRUGS (1)
  1. ZELBORAF [Suspect]
     Active Substance: VEMURAFENIB
     Indication: PRODUCT USED FOR UNKNOWN INDICATION

REACTIONS (7)
  - Rash [Unknown]
  - Alopecia [Unknown]
  - Melanocytic naevus [Unknown]
  - Headache [Unknown]
  - Eye naevus [Unknown]
  - Rectal haemorrhage [Unknown]
  - Weight decreased [Unknown]
